FAERS Safety Report 4503223-6 (Version None)
Quarter: 2004Q4

REPORT INFORMATION
  Report Type: 
  Country: None (occurrence: None)
  Receive Date: 20041112
  Receipt Date: 20041029
  Transmission Date: 20050328
  Serious: Yes (Other)
  Sender: FDA-Public Use
  Company Number: 2004242731NO

PATIENT
  Age: 43 Year
  Sex: Male

DRUGS (5)
  1. CAMPTO       (IRINOTECAN)                  SOLUTION, STERILE [Suspect]
     Indication: ADENOCARCINOMA
     Dosage: 360 MG, Q14D, CYCLIC
     Dates: start: 20030410
  2. FLUOROURACIL [Suspect]
     Indication: ADENOCARCINOMA
     Dosage: 1000 MG, Q14D, CYCLIC
     Dates: start: 20030410
  3. LEUCOVORIN CALCIUM [Suspect]
     Indication: ADENOCARCINOMA
     Dosage: 120 MG, Q14D, CYCLIC
     Dates: start: 20030310
  4. LANSOPRAZOLE [Concomitant]
  5. IMODIUM [Concomitant]

REACTIONS (2)
  - BLINDNESS [None]
  - CATARACT [None]
